FAERS Safety Report 10662647 (Version 2)
Quarter: 2015Q1

REPORT INFORMATION
  Report Type: Spontaneous
  Country: GB (occurrence: GB)
  Receive Date: 20141218
  Receipt Date: 20150312
  Transmission Date: 20150720
  Serious: Yes (Other)
  Sender: FDA-Public Use
  Company Number: GB-BAYER-2014-185556

PATIENT
  Age: 48 Year
  Sex: Female

DRUGS (1)
  1. MIRENA [Suspect]
     Active Substance: LEVONORGESTREL
     Dosage: 20 MCG/24HR, CONT
     Route: 015
     Dates: start: 20131209

REACTIONS (3)
  - Optic ischaemic neuropathy [Unknown]
  - Blindness [Not Recovered/Not Resolved]
  - Retinal vascular thrombosis [Unknown]

NARRATIVE: CASE EVENT DATE: 20131209
